FAERS Safety Report 8252114-6 (Version None)
Quarter: 2012Q2

REPORT INFORMATION
  Report Type: 
  Country: None (occurrence: None)
  Receive Date: 20120402
  Receipt Date: 20110614
  Transmission Date: 20120825
  Serious: No
  Sender: FDA-Public Use
  Company Number: US-ABBOTT-11P-163-0732427-00

PATIENT
  Age: 24 Year
  Sex: Male
  Weight: 78.088 kg

DRUGS (2)
  1. ANDROGEL [Suspect]
     Indication: BLOOD TESTOSTERONE DECREASED
     Dates: start: 20110301, end: 20110614
  2. ANDROGEL [Suspect]
     Dates: start: 20110614

REACTIONS (5)
  - HAEMOGLOBIN INCREASED [None]
  - FATIGUE [None]
  - BLOOD TESTOSTERONE DECREASED [None]
  - RED BLOOD CELL COUNT INCREASED [None]
  - HAEMATOCRIT INCREASED [None]
